FAERS Safety Report 7074274-5 (Version None)
Quarter: 2010Q4

REPORT INFORMATION
  Report Type: 
  Country: None (occurrence: None)
  Receive Date: 20101029
  Receipt Date: 20101018
  Transmission Date: 20110411
  Serious: Yes (Hospitalization, Other)
  Sender: FDA-Public Use
  Company Number: GB-AMGEN-QUU423568

PATIENT

DRUGS (9)
  1. ETANERCEPT [Suspect]
     Indication: RHEUMATOID ARTHRITIS
     Dosage: 25 MG, 2 TIMES/WK
     Route: 058
     Dates: start: 20050215
  2. PARACETAMOL [Concomitant]
     Dosage: UNK UNK, UNK
  3. PARACETAMOL [Concomitant]
     Dosage: UNKNOWN
  4. NABUMETONE [Concomitant]
     Dosage: UNK UNK, UNK
  5. NABUMETONE [Concomitant]
  6. PREDNISOLONE [Concomitant]
     Dosage: UNK UNK, UNK
  7. PREDNISOLONE [Concomitant]
  8. ACETAMINOPHEN W/ PROPOXYPHENE HCL [Concomitant]
     Dosage: UNK UNK, UNK
  9. ACETAMINOPHEN WITH PROPOXYPHENE HCL TAB [Concomitant]
     Dosage: UNKNOWN

REACTIONS (2)
  - ARTERIAL OCCLUSIVE DISEASE [None]
  - PERIPHERAL EMBOLISM [None]
